FAERS Safety Report 6758151-2 (Version None)
Quarter: 2010Q2

REPORT INFORMATION
  Report Type: 
  Country: None (occurrence: None)
  Receive Date: 20100524
  Receipt Date: 20100407
  Transmission Date: 20101027
  Serious: No
  Sender: FDA-Public Use
  Company Number: 009906

PATIENT
  Sex: Female
  Weight: 75 kg

DRUGS (4)
  1. CIMZIA [Suspect]
     Indication: RHEUMATOID ARTHRITIS
     Dosage: (400 MG, PRE-FILLED SYRINGE SUBCUTANEOUS)
     Route: 058
     Dates: start: 20100201
  2. METHOTREXATE [Concomitant]
  3. TRAMADOL [Concomitant]
  4. FOLIC ACID [Concomitant]

REACTIONS (2)
  - INFLUENZA [None]
  - NASOPHARYNGITIS [None]
